FAERS Safety Report 24158695 (Version 1)
Quarter: 2024Q3

REPORT INFORMATION
  Report Type: Report from Study
  Country: US (occurrence: US)
  Receive Date: 20240731
  Receipt Date: 20240731
  Transmission Date: 20241016
  Serious: No
  Sender: AURINIA PHARMACEUTICALS
  Company Number: US-AURINIA PHARMACEUTICALS INC.-AUR-006051

PATIENT
  Sex: Female

DRUGS (1)
  1. LUPKYNIS [Suspect]
     Active Substance: VOCLOSPORIN
     Indication: Lupus nephritis
     Dosage: 15.8MG IN THE MORNING AND 7.9 MG IN THE EVENING
     Route: 048
     Dates: start: 20220328

REACTIONS (3)
  - Haemorrhoids [Unknown]
  - Full blood count decreased [Unknown]
  - Herpes dermatitis [Unknown]
